FAERS Safety Report 4587814-2 (Version None)
Quarter: 2005Q1

REPORT INFORMATION
  Report Type: 
  Country: None (occurrence: None)
  Receive Date: 20050125
  Receipt Date: 20040902
  Transmission Date: 20050727
  Serious: No
  Sender: FDA-Public Use
  Company Number: USA040977301

PATIENT
  Age: 82 Year
  Sex: Female

DRUGS (2)
  1. FORTEO [Suspect]
     Indication: OSTEOPOROSIS
     Dates: start: 20040401
  2. CALCIUM GLUCONATE [Concomitant]

REACTIONS (4)
  - DYSPNOEA EXACERBATED [None]
  - HOT FLUSH [None]
  - INSOMNIA [None]
  - MEMORY IMPAIRMENT [None]
